FAERS Safety Report 7481646-3 (Version None)
Quarter: 2011Q2

REPORT INFORMATION
  Report Type: 
  Country: None (occurrence: None)
  Receive Date: 20110516
  Receipt Date: 20110503
  Transmission Date: 20111010
  Serious: Yes (Other)
  Sender: FDA-Public Use
  Company Number: CA-ELI_LILLY_AND_COMPANY-CA201105000524

PATIENT
  Sex: Male

DRUGS (16)
  1. LITHANE [Concomitant]
  2. APO-AMILZIDE [Concomitant]
  3. ZYPREXA [Suspect]
     Dosage: 15 MG, EACH EVENING
  4. TRAZODONE HCL [Concomitant]
  5. CLONAZEPAM [Concomitant]
  6. DIAZEPAM [Concomitant]
  7. OXAZEPAM [Concomitant]
  8. PIPORTIL [Concomitant]
  9. ZYPREXA [Suspect]
     Indication: SCHIZOPHRENIA
     Dosage: 5 MG, EACH EVENING
  10. ZYPREXA [Suspect]
     Dosage: 20 MG, EACH EVENING
  11. APO-METHOPRAZINE [Concomitant]
  12. ZYPREXA [Suspect]
     Dosage: 10 MG, EACH EVENING
  13. ZYPREXA [Suspect]
     Dosage: 25 MG, EACH EVENING
  14. NIFEDIPINE [Concomitant]
  15. TEMAZ [Concomitant]
  16. CHLORPROMAZINE HYDROCHLORIDE [Concomitant]

REACTIONS (9)
  - OVERDOSE [None]
  - RECTAL HAEMORRHAGE [None]
  - MICROALBUMINURIA [None]
  - H1N1 INFLUENZA [None]
  - BLOOD TRIGLYCERIDES INCREASED [None]
  - BLINDNESS [None]
  - ANGINA PECTORIS [None]
  - DIABETES MELLITUS [None]
  - DIABETIC KETOACIDOSIS [None]
